FAERS Safety Report 14466192 (Version 2)
Quarter: 2018Q1

REPORT INFORMATION
  Report Type: Spontaneous
  Country: GR (occurrence: GR)
  Receive Date: 20180131
  Receipt Date: 20180213
  Transmission Date: 20180509
  Serious: Yes (Hospitalization)
  Sender: FDA-Public Use
  Company Number: GR-B.I. PHARMACEUTICALS,INC./RIDGEFIELD-2018-BI-004643

PATIENT
  Age: 83 Year
  Sex: Male

DRUGS (1)
  1. PRAXBIND [Suspect]
     Active Substance: IDARUCIZUMAB
     Indication: HAEMORRHAGE PROPHYLAXIS
     Route: 042
     Dates: start: 201801, end: 201801

REACTIONS (1)
  - Scrotal haematoma [Recovered/Resolved]

NARRATIVE: CASE EVENT DATE: 201801
